FAERS Safety Report 20128388 (Version 1)
Quarter: 2021Q4

REPORT INFORMATION
  Report Type: Spontaneous
  Country: US (occurrence: US)
  Receive Date: 20211130
  Receipt Date: 20211130
  Transmission Date: 20220303
  Serious: Yes (Hospitalization, Other)
  Sender: FDA-Public Use
  Company Number: US-THERATECHNOLOGIES INC.-2021-THE-IBA-000295

PATIENT
  Sex: Male

DRUGS (1)
  1. TROGARZO [Suspect]
     Active Substance: IBALIZUMAB-UIYK
     Indication: Product used for unknown indication
     Dosage: UNK
     Route: 042
     Dates: start: 2018

REACTIONS (5)
  - Vision blurred [Unknown]
  - Delirium [Unknown]
  - Progressive multifocal leukoencephalopathy [Unknown]
  - JC polyomavirus test positive [Unknown]
  - CD4 lymphocytes decreased [Unknown]
